FAERS Safety Report 17158522 (Version 1)
Quarter: 2019Q4

REPORT INFORMATION
  Report Type: Spontaneous
  Country: US (occurrence: US)
  Receive Date: 20191216
  Receipt Date: 20191216
  Transmission Date: 20200122
  Serious: No
  Sender: FDA-Public Use
  Company Number: US-PFIZER INC-2019538869

PATIENT
  Age: 69 Year
  Sex: Female
  Weight: 75.75 kg

DRUGS (1)
  1. TOVIAZ [Suspect]
     Active Substance: FESOTERODINE FUMARATE
     Indication: INCONTINENCE
     Dosage: 8 MG, 1X/DAY,8 MG, ONCE A DAY, ORALLY
     Route: 048
     Dates: start: 201911, end: 20191210

REACTIONS (4)
  - Disturbance in attention [Unknown]
  - Weight increased [Recovering/Resolving]
  - Bronchitis [Recovering/Resolving]
  - Fatigue [Unknown]

NARRATIVE: CASE EVENT DATE: 2019
